FAERS Safety Report 10603307 (Version 1)
Quarter: 2014Q4

REPORT INFORMATION
  Report Type: Spontaneous
  Country: US (occurrence: US)
  Receive Date: 20141124
  Receipt Date: 20141124
  Transmission Date: 20150529
  Serious: No
  Sender: FDA-Public Use
  Company Number: US-009507513-1410USA014711

PATIENT
  Age: 66 Year
  Sex: Female

DRUGS (4)
  1. KETOPROFEN. [Concomitant]
     Active Substance: KETOPROFEN
  2. NOXAFIL [Suspect]
     Active Substance: POSACONAZOLE
     Indication: FUNGAL INFECTION
     Dosage: 100 MG, UNSPECIFIED FREQUENCY
     Route: 048
     Dates: start: 20140904, end: 20141002
  3. HYPOTEN (ATENOLOL) [Concomitant]
  4. THYROID [Concomitant]
     Active Substance: LEVOTHYROXINE\LIOTHYRONINE

REACTIONS (7)
  - Ocular hyperaemia [Recovering/Resolving]
  - Anal pruritus [Recovering/Resolving]
  - Lip swelling [Recovering/Resolving]
  - Epistaxis [Recovering/Resolving]
  - Lip exfoliation [Recovering/Resolving]
  - Hordeolum [Recovering/Resolving]
  - Haemorrhage [Recovering/Resolving]

NARRATIVE: CASE EVENT DATE: 20140914
